FAERS Safety Report 5021304-8 (Version None)
Quarter: 2006Q2

REPORT INFORMATION
  Report Type: 
  Country: None (occurrence: None)
  Receive Date: 20060608
  Receipt Date: 20060602
  Transmission Date: 20061013
  Serious: Yes (Hospitalization)
  Sender: FDA-Public Use
  Company Number: FR-GLAXOSMITHKLINE-B0426559A

PATIENT
  Age: 86 Year
  Sex: Male

DRUGS (13)
  1. AUGMENTIN '125' [Suspect]
     Indication: SUPERINFECTION LUNG
     Dosage: 3G PER DAY
     Route: 048
  2. ANTACID WITH SIMETHICONE [Suspect]
     Dosage: 450MG PER DAY
     Route: 048
  3. OXEOL [Concomitant]
     Dosage: 10MG PER DAY
     Route: 048
  4. PNEUMOREL [Concomitant]
     Dosage: 160MG PER DAY
     Route: 048
  5. EUPANTOL [Concomitant]
     Dosage: 20MG PER DAY
     Route: 048
  6. FUROSEMIDE [Concomitant]
     Dosage: 20MG IN THE MORNING
     Route: 065
  7. IMOVANE [Concomitant]
     Dosage: 3.75MG AT NIGHT
     Route: 065
  8. OROCAL D3 [Concomitant]
     Dosage: 1UNIT TWICE PER DAY
     Route: 065
  9. DIFFU-K [Concomitant]
     Dosage: 1UNIT TWICE PER DAY
     Route: 065
  10. ODRIK [Concomitant]
     Dosage: 2MG IN THE MORNING
     Route: 065
  11. BRICANYL [Concomitant]
     Dosage: 1UNIT TWICE PER DAY
     Route: 065
  12. PULMICORT [Concomitant]
     Dosage: .5MG TWICE PER DAY
     Route: 065
  13. NIFUROXAZIDE [Concomitant]
     Dosage: 1CAP SEE DOSAGE TEXT
     Route: 048

REACTIONS (8)
  - ANAEMIA [None]
  - DEHYDRATION [None]
  - DIARRHOEA [None]
  - GENERAL PHYSICAL HEALTH DETERIORATION [None]
  - MELAENA [None]
  - OBSTRUCTIVE AIRWAYS DISORDER [None]
  - PRODUCTIVE COUGH [None]
  - SUPERINFECTION LUNG [None]
